FAERS Safety Report 4836743-5 (Version None)
Quarter: 2005Q4

REPORT INFORMATION
  Report Type: 
  Country: None (occurrence: None)
  Receive Date: 20051121
  Receipt Date: 20051107
  Transmission Date: 20060501
  Serious: Yes (Other)
  Sender: FDA-Public Use
  Company Number: PHHO2005JP15533

PATIENT
  Age: 72 Year
  Sex: Female
  Weight: 60.0109 kg

DRUGS (6)
  1. VISUDYNE [Suspect]
     Indication: POLYPOIDAL CHOROIDAL VASCULOPATHY
     Dosage: 6 MG/M^2 ONCE IV
     Route: 042
     Dates: start: 20040820, end: 20040820
  2. SERENAL [Concomitant]
  3. HERBESSER [Concomitant]
  4. SIGMART [Concomitant]
  5. LIPOVAS [Concomitant]
  6. MARZULENE S [Concomitant]

REACTIONS (4)
  - DISEASE RECURRENCE [None]
  - POLYPOIDAL CHOROIDAL VASCULOPATHY [None]
  - RETINAL HAEMORRHAGE [None]
  - VISUAL ACUITY REDUCED [None]
